FAERS Safety Report 7865098-7 (Version None)
Quarter: 2011Q4

REPORT INFORMATION
  Report Type: 
  Country: None (occurrence: None)
  Receive Date: 20111028
  Receipt Date: 20101013
  Transmission Date: 20120403
  Serious: Yes (Hospitalization)
  Sender: FDA-Public Use
  Company Number: US-GLAXOSMITHKLINE-A0886418A

PATIENT
  Age: 59 Year
  Sex: Male

DRUGS (8)
  1. TORSEMIDE [Concomitant]
  2. ANTIBIOTICS [Concomitant]
  3. SPIRIVA [Concomitant]
  4. PREDNISONE [Concomitant]
  5. ADVAIR DISKUS 100/50 [Suspect]
     Indication: CHRONIC OBSTRUCTIVE PULMONARY DISEASE
     Route: 055
     Dates: start: 20040101, end: 20100101
  6. PROAIR HFA [Concomitant]
  7. ALBUTEROL [Concomitant]
  8. FLOVENT [Suspect]
     Indication: CHRONIC OBSTRUCTIVE PULMONARY DISEASE
     Dosage: 1PUFF TWICE PER DAY
     Route: 055
     Dates: start: 20100101

REACTIONS (4)
  - PNEUMONIA [None]
  - DIZZINESS [None]
  - HEADACHE [None]
  - DYSPNOEA [None]
